FAERS Safety Report 13938448 (Version 1)
Quarter: 2017Q3

REPORT INFORMATION
  Report Type: Spontaneous
  Country: US (occurrence: US)
  Receive Date: 20170905
  Receipt Date: 20170905
  Transmission Date: 20171127
  Serious: Yes (Disabling, Other)
  Sender: FDA-Public Use
  Company Number: None

PATIENT
  Sex: Male
  Weight: 90 kg

DRUGS (6)
  1. MOXIFLOXACIN. [Suspect]
     Active Substance: MOXIFLOXACIN
  2. ENTERIC ASPIRIN [Concomitant]
     Active Substance: ASPIRIN
  3. CIPRO [Suspect]
     Active Substance: CIPROFLOXACIN HYDROCHLORIDE
  4. DURTASTERIDE [Concomitant]
  5. FISH OIL [Concomitant]
     Active Substance: FISH OIL
  6. NIACIN (WAX MATRIX SLOW RELEASE) [Concomitant]

REACTIONS (3)
  - Horner^s syndrome [None]
  - Tendon rupture [None]
  - Fall [None]

NARRATIVE: CASE EVENT DATE: 20160426
